FAERS Safety Report 20315780 (Version 2)
Quarter: 2022Q2

REPORT INFORMATION
  Report Type: Spontaneous
  Country: US (occurrence: US)
  Receive Date: 20220110
  Receipt Date: 20220425
  Transmission Date: 20220721
  Serious: No
  Sender: FDA-Public Use
  Company Number: US-SA-SAC20220105000605

PATIENT
  Age: 66 Year
  Sex: Female

DRUGS (20)
  1. DUPIXENT [Suspect]
     Active Substance: DUPILUMAB
     Indication: Asthma
     Dosage: 300 MG, QOW
     Route: 058
     Dates: start: 20190516
  2. AZITHROMYCIN [Concomitant]
     Active Substance: AZITHROMYCIN
     Dosage: 300 MG
  3. BREO ELLIPTA [Concomitant]
     Active Substance: FLUTICASONE FUROATE\VILANTEROL TRIFENATATE
     Dosage: 20 MG
  4. DICYCLOMINE HYDROCHLORIDE [Concomitant]
     Active Substance: DICYCLOMINE HYDROCHLORIDE
     Dosage: 20 MG
  5. ELMIRON [Concomitant]
     Active Substance: PENTOSAN POLYSULFATE SODIUM
     Dosage: 10MG
  6. ESCITALOPRAM [Concomitant]
     Active Substance: ESCITALOPRAM OXALATE
     Dosage: 10 UNK
  7. EVISTA [Concomitant]
     Active Substance: RALOXIFENE HYDROCHLORIDE
     Dosage: 60 MG
  8. FAMOTIDINE [Concomitant]
     Active Substance: FAMOTIDINE
     Indication: Gastrooesophageal reflux disease
     Dosage: 500MG
  9. GLUCOSAMINE [Concomitant]
     Active Substance: GLUCOSAMINE
     Dosage: 500MG
  10. APAP [Concomitant]
     Active Substance: ACETAMINOPHEN
     Dosage: UNK
  11. LEVSIN [Concomitant]
     Active Substance: HYOSCYAMINE SULFATE
  12. METFORMIN [Concomitant]
     Active Substance: METFORMIN HYDROCHLORIDE
     Indication: Type 2 diabetes mellitus
  13. ONDANSETRON [Concomitant]
     Active Substance: ONDANSETRON
  14. PREDNISONE [Concomitant]
     Active Substance: PREDNISONE
  15. ROSUVASTATIN [Concomitant]
     Active Substance: ROSUVASTATIN
     Dosage: 5MG
  16. SPIRIVA [Concomitant]
     Active Substance: TIOTROPIUM BROMIDE MONOHYDRATE
     Dosage: 5MG
  17. LEVALBUTEROL [Concomitant]
     Active Substance: LEVALBUTEROL
  18. ACETAMINOPHEN\HYDROCODONE [Concomitant]
     Active Substance: ACETAMINOPHEN\HYDROCODONE
     Dosage: 7.5-325
  19. LEVALBUTEROL HYDROCHLORIDE [Concomitant]
     Active Substance: LEVALBUTEROL HYDROCHLORIDE
     Dosage: 45 MCG
  20. MELATONIN [Concomitant]
     Active Substance: MELATONIN
     Dosage: 3 MG

REACTIONS (3)
  - Asthma [Not Recovered/Not Resolved]
  - Quality of life decreased [Not Recovered/Not Resolved]
  - Injection site reaction [Not Recovered/Not Resolved]
